FAERS Safety Report 20538195 (Version 1)
Quarter: 2022Q1

REPORT INFORMATION
  Report Type: Report from Study
  Country: CA (occurrence: CA)
  Receive Date: 20220302
  Receipt Date: 20220302
  Transmission Date: 20220423
  Serious: Yes (Other)
  Sender: FDA-Public Use
  Company Number: CA-JNJFOC-20210861327

PATIENT
  Age: 60 Year
  Sex: Female

DRUGS (2)
  1. STELARA [Suspect]
     Active Substance: USTEKINUMAB
     Indication: Product used for unknown indication
     Route: 058
  2. STELARA [Suspect]
     Active Substance: USTEKINUMAB

REACTIONS (5)
  - Haemorrhage [Unknown]
  - Skin infection [Recovering/Resolving]
  - Diarrhoea [Not Recovered/Not Resolved]
  - Melanocytic naevus [Unknown]
  - Dermatitis contact [Unknown]

NARRATIVE: CASE EVENT DATE: 20210401
